FAERS Safety Report 15651223 (Version 1)
Quarter: 2018Q4

REPORT INFORMATION
  Report Type: Spontaneous
  Country: DE (occurrence: DE)
  Receive Date: 20181123
  Receipt Date: 20181123
  Transmission Date: 20190205
  Serious: Yes (Hospitalization, Other)
  Sender: FDA-Public Use
  Company Number: DE-TEVA-2018-DE-977550

PATIENT
  Age: 48 Year
  Sex: Male

DRUGS (7)
  1. BISOPROLOL [Interacting]
     Active Substance: BISOPROLOL
     Dosage: DOSAGE INCREASED
     Route: 065
     Dates: start: 200311, end: 200311
  2. BISOPROLOL [Suspect]
     Active Substance: BISOPROLOL
     Route: 065
     Dates: end: 200311
  3. LAMISIL [Suspect]
     Active Substance: TERBINAFINE HYDROCHLORIDE
     Indication: ONYCHOMYCOSIS
     Dosage: 250 MILLIGRAM DAILY; 250 MG, QD
     Route: 048
     Dates: start: 20030321, end: 20030323
  4. BISOPROLOL [Interacting]
     Active Substance: BISOPROLOL
     Dosage: DOSAGE REDUCED
     Route: 065
     Dates: start: 200311
  5. AMIOXID-NEURAXPHARM [Interacting]
     Active Substance: AMITRIPTYLINOXIDE
     Dosage: 30 MILLIGRAM DAILY;
     Route: 048
     Dates: start: 2003, end: 200311
  6. AMIOXID-NEURAXPHARM [Interacting]
     Active Substance: AMITRIPTYLINOXIDE
     Dosage: 30 MILLIGRAM DAILY;
     Route: 048
     Dates: start: 200311, end: 200311
  7. AMIOXID-NEURAXPHARM [Interacting]
     Active Substance: AMITRIPTYLINOXIDE
     Dosage: DOSE REDUCED
     Route: 065
     Dates: start: 200311

REACTIONS (4)
  - Tachycardia [Recovered/Resolved]
  - Arrhythmia [Recovered/Resolved]
  - Drug interaction [Unknown]
  - Hyperhidrosis [Recovered/Resolved]

NARRATIVE: CASE EVENT DATE: 20030321
